FAERS Safety Report 7109076-4 (Version None)
Quarter: 2010Q4

REPORT INFORMATION
  Report Type: 
  Country: None (occurrence: None)
  Receive Date: 20101117
  Receipt Date: 20101109
  Transmission Date: 20110411
  Serious: Yes (Hospitalization)
  Sender: FDA-Public Use
  Company Number: FR-PFIZER INC-2010131462

PATIENT
  Age: 50 Year
  Sex: Female

DRUGS (4)
  1. ARACYTINE [Suspect]
     Indication: LEUKAEMIA
  2. DOXORUBICIN HCL [Suspect]
     Indication: LEUKAEMIA
  3. DAUNORUBICIN HCL [Suspect]
     Indication: LEUKAEMIA
  4. MYLOTARG [Suspect]
     Indication: LEUKAEMIA

REACTIONS (1)
  - TREMOR [None]
